FAERS Safety Report 25655125 (Version 1)
Quarter: 2025Q3

REPORT INFORMATION
  Report Type: Spontaneous
  Country: CA (occurrence: CA)
  Receive Date: 20250807
  Receipt Date: 20250807
  Transmission Date: 20251021
  Serious: Yes (Life-Threatening)
  Sender: PFIZER
  Company Number: CA-PFIZER INC-202500158537

PATIENT
  Age: 78 Year
  Sex: Male
  Weight: 73 kg

DRUGS (35)
  1. FRAGMIN [Suspect]
     Active Substance: DALTEPARIN SODIUM
     Indication: Thrombosis prophylaxis
     Dosage: 5000 MG, 1X/DAY
     Route: 058
  2. PLAVIX [Suspect]
     Active Substance: CLOPIDOGREL BISULFATE
     Indication: Arteriosclerosis coronary artery
     Dosage: 75 MG, 1X/DAY
     Route: 048
  3. ACETAMINOPHEN [Concomitant]
     Active Substance: ACETAMINOPHEN
  4. ATORVASTATIN CALCIUM [Concomitant]
     Active Substance: ATORVASTATIN CALCIUM
     Route: 065
  5. AMLODIPINE [Concomitant]
     Active Substance: AMLODIPINE BESYLATE
     Route: 065
  6. CEFIXIME [Concomitant]
     Active Substance: CEFIXIME
  7. CEFTAZIDIME [Concomitant]
     Active Substance: CEFTAZIDIME
  8. CLOPIDOGREL [Concomitant]
     Active Substance: CLOPIDOGREL BISULFATE
  9. DUTASTERIDE [Concomitant]
     Active Substance: DUTASTERIDE
  10. FUROSEMIDE [Concomitant]
     Active Substance: FUROSEMIDE
     Route: 065
  11. GLICLAZIDE [Concomitant]
     Active Substance: GLICLAZIDE
  12. HALOPERIDOL [Concomitant]
     Active Substance: HALOPERIDOL
  13. HYDRALAZINE [Concomitant]
     Active Substance: HYDRALAZINE HYDROCHLORIDE
  14. HYDROMORPHONE [Concomitant]
     Active Substance: HYDROMORPHONE
  15. INSULIN BEEF [Concomitant]
     Active Substance: INSULIN BEEF
  16. ALBUTEROL\IPRATROPIUM BROMIDE [Concomitant]
     Active Substance: ALBUTEROL\IPRATROPIUM BROMIDE
     Route: 065
  17. IRBESARTAN [Concomitant]
     Active Substance: IRBESARTAN
     Route: 065
  18. JARDIANCE [Concomitant]
     Active Substance: EMPAGLIFLOZIN
  19. MAGNESIUM [Concomitant]
     Active Substance: MAGNESIUM
  20. MEROPENEM [Concomitant]
     Active Substance: MEROPENEM
  21. METFORMIN [Concomitant]
     Active Substance: METFORMIN HYDROCHLORIDE
  22. LEVOMEPROMAZINE MALEATE [Concomitant]
     Active Substance: LEVOMEPROMAZINE MALEATE
  23. METOPROLOL [Concomitant]
     Active Substance: METOPROLOL
     Route: 065
  24. NITROGLYCERIN [Concomitant]
     Active Substance: NITROGLYCERIN
  25. OLANZAPINE [Concomitant]
     Active Substance: OLANZAPINE
  26. ONDANSETRON [Concomitant]
     Active Substance: ONDANSETRON
  27. PANTOPRAZOLE [Concomitant]
     Active Substance: PANTOPRAZOLE
  28. PIPERACILLIN SODIUM\TAZOBACTAM SODIUM [Concomitant]
     Active Substance: PIPERACILLIN SODIUM\TAZOBACTAM SODIUM
  29. POTASSIUM [Concomitant]
     Active Substance: POTASSIUM
  30. QUETIAPINE [Concomitant]
     Active Substance: QUETIAPINE
  31. ROSUVASTATIN [Concomitant]
     Active Substance: ROSUVASTATIN
     Route: 065
  32. ALBUTEROL [Concomitant]
     Active Substance: ALBUTEROL
  33. SEMAGLUTIDE [Concomitant]
     Active Substance: SEMAGLUTIDE
  34. TAMSULOSIN [Concomitant]
     Active Substance: TAMSULOSIN
  35. VANCOMYCIN [Concomitant]
     Active Substance: VANCOMYCIN

REACTIONS (2)
  - Haemoglobin decreased [Recovered/Resolved]
  - Spontaneous haematoma [Recovered/Resolved]
